FAERS Safety Report 21422681 (Version 1)
Quarter: 2022Q4

REPORT INFORMATION
  Report Type: Spontaneous
  Country: US (occurrence: US)
  Receive Date: 20221007
  Receipt Date: 20221007
  Transmission Date: 20230113
  Serious: Yes (Other)
  Sender: FDA-Public Use
  Company Number: US-PFIZER INC-PV202200077731

PATIENT
  Age: 6 Year
  Sex: Female
  Weight: 17.69 kg

DRUGS (2)
  1. ETHOSUXIMIDE [Suspect]
     Active Substance: ETHOSUXIMIDE
     Indication: Seizure
     Dosage: 5ML IN THE MORNING AND 5ML IN THE NIGHT
     Route: 048
     Dates: start: 2021
  2. ETHOSUXIMIDE [Suspect]
     Active Substance: ETHOSUXIMIDE
     Dosage: UNK
     Route: 048
     Dates: start: 202209

REACTIONS (1)
  - Therapeutic product effect incomplete [Recovering/Resolving]
